FAERS Safety Report 4939918-X (Version None)
Quarter: 2006Q1

REPORT INFORMATION
  Report Type: 
  Country: None (occurrence: None)
  Receive Date: 20060310
  Receipt Date: 20060105
  Transmission Date: 20060701
  Serious: Yes (Hospitalization, Disabling)
  Sender: FDA-Public Use
  Company Number: JP-JPN-A200600009

PATIENT
  Age: 38 Year
  Sex: Male
  Weight: 39 kg

DRUGS (22)
  1. ZOVIRAX [Suspect]
     Dosage: 250MG PER DAY
     Route: 042
     Dates: start: 20051227, end: 20051227
  2. ZOVIRAX [Suspect]
     Dosage: 250MG PER DAY
     Route: 042
     Dates: start: 20051230, end: 20051230
  3. MAXIPIME [Concomitant]
     Dosage: 1000MG PER DAY
     Route: 042
     Dates: start: 20051222, end: 20060102
  4. CLINDAMYCIN PHOSPHATE [Concomitant]
     Route: 065
  5. VFEND [Concomitant]
     Dosage: 200MG PER DAY
     Route: 065
  6. DEPAKENE [Concomitant]
     Indication: EPILEPSY
     Route: 048
     Dates: start: 20050801
  7. OMEPRAL [Concomitant]
     Dosage: 40MG PER DAY
     Route: 042
     Dates: start: 20051227, end: 20060104
  8. DALACIN [Concomitant]
     Route: 042
     Dates: start: 20051223, end: 20060102
  9. CALCICOL [Concomitant]
     Dosage: 5ML PER DAY
     Route: 042
     Dates: start: 20060101, end: 20060101
  10. BENAMBAX [Concomitant]
     Route: 055
     Dates: start: 20051101
  11. VENETLIN [Concomitant]
     Dosage: .5ML PER DAY
     Route: 055
     Dates: start: 20051101
  12. ALFAROL [Concomitant]
     Route: 048
  13. BORRAZA-G [Concomitant]
     Indication: ANAL FISSURE
     Route: 054
     Dates: start: 20051205, end: 20060110
  14. AMOBAN [Concomitant]
     Indication: INSOMNIA
     Dosage: 7.5MG PER DAY
     Route: 048
     Dates: start: 20051013
  15. DEPAS [Concomitant]
     Indication: ANXIETY
     Dosage: .5MG PER DAY
     Route: 048
     Dates: start: 20060101, end: 20060102
  16. FUNGIZONE [Concomitant]
     Dosage: 3ML PER DAY
     Route: 048
     Dates: start: 20051020
  17. BIOFERMIN R [Concomitant]
     Dosage: 3G PER DAY
     Route: 048
     Dates: start: 20060101, end: 20060219
  18. LANSOPRAZOLE [Concomitant]
     Indication: DUODENAL ULCER
     Route: 048
     Dates: start: 20060104
  19. MYCOSPOR [Concomitant]
     Indication: SKIN CANDIDA
     Route: 061
     Dates: start: 20051222
  20. NEOAMIYU [Concomitant]
     Route: 042
     Dates: start: 20051227, end: 20060104
  21. VITAMEDIN [Concomitant]
     Indication: HYPOVITAMINOSIS
     Route: 042
     Dates: start: 20051227, end: 20060104
  22. HICALIQ [Concomitant]
     Route: 042
     Dates: start: 20051227, end: 20060104

REACTIONS (3)
  - DELIRIUM [None]
  - DEPRESSED LEVEL OF CONSCIOUSNESS [None]
  - EPILEPSY [None]
